FAERS Safety Report 25240108 (Version 3)
Quarter: 2025Q4

REPORT INFORMATION
  Report Type: Spontaneous
  Country: EU (occurrence: EU)
  Receive Date: 20250425
  Receipt Date: 20251103
  Transmission Date: 20260117
  Serious: Yes (Other)
  Sender: MERCK SHARP & DOHME LLC
  Company Number: EU-009507513-2277399

PATIENT
  Age: 65 Year
  Sex: Female

DRUGS (8)
  1. PEMBROLIZUMAB [Suspect]
     Active Substance: PEMBROLIZUMAB
     Indication: Lung adenocarcinoma stage IV
     Dosage: FIRST LINE TREATMENT CYCLE 2-4
     Dates: start: 2024, end: 2024
  2. PEMBROLIZUMAB [Suspect]
     Active Substance: PEMBROLIZUMAB
     Indication: Lung adenocarcinoma stage IV
     Dosage: MAINTENANCE THERAPY
     Dates: start: 202411
  3. bictegravir, emtricitabine, and tenofovir alafenamide [Concomitant]
     Indication: HIV infection
  4. CARBOPLATIN [Suspect]
     Active Substance: CARBOPLATIN
     Indication: Lung adenocarcinoma stage IV
     Dosage: FULL DOSE, FIRST LINE TREATMENT CYCLE 2-4
     Dates: start: 2024, end: 2024
  5. CARBOPLATIN [Suspect]
     Active Substance: CARBOPLATIN
     Indication: Lung adenocarcinoma stage IV
     Dosage: AREA UNDER CURVE (AUC) 5, REGIMEN REDUCED BY 20%, FIRST LINE TREATMENT CYCLE 1
     Dates: start: 2024, end: 2024
  6. PEMETREXED [Suspect]
     Active Substance: PEMETREXED
     Indication: Lung adenocarcinoma stage IV
     Dosage: FULL DOSE, FIRST LINE TREATMENT CYCLE 2-4
     Dates: start: 2024, end: 2024
  7. PEMETREXED [Suspect]
     Active Substance: PEMETREXED
     Indication: Lung adenocarcinoma stage IV
     Dosage: MAINTENANCE THERAPY
     Dates: start: 202411
  8. PEMETREXED [Suspect]
     Active Substance: PEMETREXED
     Indication: Lung adenocarcinoma stage IV
     Dosage: REGIMEN REDUCED BY 20%, FIRST LINE TREATMENT CYCLE 1
     Dates: start: 2024, end: 2024

REACTIONS (2)
  - Neutropenia [Recovering/Resolving]
  - Transaminases increased [Recovering/Resolving]

NARRATIVE: CASE EVENT DATE: 20240101
